FAERS Safety Report 4383276-9 (Version None)
Quarter: 2004Q2

REPORT INFORMATION
  Report Type: 
  Country: None (occurrence: None)
  Receive Date: 20040623
  Receipt Date: 20040611
  Transmission Date: 20050107
  Serious: Yes (Hospitalization, Other)
  Sender: FDA-Public Use
  Company Number: BE-BRISTOL-MYERS SQUIBB COMPANY-12611885

PATIENT
  Age: 69 Year
  Sex: Male

DRUGS (3)
  1. DIDANOSINE [Suspect]
     Indication: HIV INFECTION
     Dosage: ONCE DAILY
     Dates: start: 20030801, end: 20040526
  2. VIREAD [Suspect]
     Indication: HIV INFECTION
     Dosage: ONCE DAILY
     Route: 048
     Dates: start: 20020801, end: 20040512
  3. KALETRA [Concomitant]
     Indication: HIV INFECTION
     Dates: start: 20030801

REACTIONS (4)
  - FANCONI SYNDROME ACQUIRED [None]
  - LACTIC ACIDOSIS [None]
  - LOBAR PNEUMONIA [None]
  - RENAL FAILURE [None]
